FAERS Safety Report 7670020 (Version 2)
Quarter: 2013Q1

REPORT INFORMATION
  Report Type: Spontaneous
  Country: US (occurrence: None)
  Receive Date: 20101022
  Receipt Date: 20130222
  Transmission Date: 20140127
  Serious: Yes (Other)
  Sender: FDA-Public Use
  Company Number: JPI-P-012548

PATIENT
  Age: 48 Year
  Sex: Female

DRUGS (9)
  1. XYREM [Suspect]
     Indication: NARCOLEPSY
     Dosage: 6 GM (3 GM, 2 IN 1 D), ORAL
     Dates: start: 20040923
  2. RIBAVIRIN [Suspect]
     Indication: HEPATITIS C
  3. ARMODAFINIL [Concomitant]
  4. ARIPIPRAZOLE [Concomitant]
  5. DULOXETINE HYDROCHLORIDE [Concomitant]
  6. LEVOTHYROXINE SODIUM [Concomitant]
  7. PANTOPRAZOLE [Concomitant]
  8. TOPIRAMATE [Concomitant]
  9. BUPROPION HYDROCHLORIDE [Concomitant]

REACTIONS (7)
  - Hepatitis C [None]
  - Pain in extremity [None]
  - Nasal ulcer [None]
  - Ulcer [None]
  - Fatigue [None]
  - Pain in extremity [None]
  - Joint stiffness [None]
